FAERS Safety Report 5175972-0 (Version None)
Quarter: 2006Q4

REPORT INFORMATION
  Report Type: 
  Country: None (occurrence: None)
  Receive Date: 20061215
  Receipt Date: 20060707
  Transmission Date: 20070319
  Serious: No
  Sender: FDA-Public Use
  Company Number: US-AMGEN-KDL185591

PATIENT
  Sex: Male

DRUGS (2)
  1. ENBREL [Suspect]
     Indication: RHEUMATOID ARTHRITIS
     Route: 058
     Dates: start: 20060524
  2. METHOTREXATE [Concomitant]
     Dates: start: 20060116

REACTIONS (5)
  - DIZZINESS [None]
  - ERYTHEMA [None]
  - PARANASAL SINUS HYPERSECRETION [None]
  - SKIN DISCOLOURATION [None]
  - SWELLING FACE [None]
